FAERS Safety Report 5447314-4 (Version None)
Quarter: 2007Q3

REPORT INFORMATION
  Report Type: 
  Country: None (occurrence: None)
  Receive Date: 20070905
  Receipt Date: 20070905
  Transmission Date: 20080115
  Serious: Yes (Other)
  Sender: FDA-Public Use
  Company Number: None

PATIENT
  Age: 51 Year
  Sex: Male
  Weight: 86.1834 kg

DRUGS (2)
  1. AMITRIPTLINE HCL [Suspect]
     Indication: INSOMNIA
     Dosage: 25MG 1 PER EVENING PO
     Route: 048
     Dates: start: 20070211, end: 20070904
  2. AMITRIPTLINE HCL [Suspect]
     Indication: PAIN
     Dosage: 25MG 1 PER EVENING PO
     Route: 048
     Dates: start: 20070211, end: 20070904

REACTIONS (2)
  - DRUG INEFFECTIVE [None]
  - PHARMACEUTICAL PRODUCT COMPLAINT [None]
